FAERS Safety Report 23723669 (Version 1)
Quarter: 2024Q2

REPORT INFORMATION
  Report Type: Spontaneous
  Country: US (occurrence: None)
  Receive Date: 20240409
  Receipt Date: 20240409
  Transmission Date: 20240716
  Serious: No
  Sender: FDA-Public Use
  Company Number: None

PATIENT

DRUGS (2)
  1. SUCRALFATE [Suspect]
     Active Substance: SUCRALFATE
     Route: 048
  2. DEXTROMETHORPHAN HBR. AND GUAIFENESIN [Suspect]
     Active Substance: DEXTROMETHORPHAN HYDROBROMIDE\GUAIFENESIN
     Route: 048

REACTIONS (5)
  - Product preparation error [None]
  - Product label confusion [None]
  - Product packaging confusion [None]
  - Device information output issue [None]
  - Device use confusion [None]
